FAERS Safety Report 9402943 (Version 1)
Quarter: 2013Q3

REPORT INFORMATION
  Report Type: Spontaneous
  Country: US (occurrence: US)
  Receive Date: 20130716
  Receipt Date: 20130716
  Transmission Date: 20140515
  Serious: Yes (Other)
  Sender: FDA-Public Use
  Company Number: US-TEVA-413091USA

PATIENT
  Sex: Female

DRUGS (1)
  1. LISINOPRIL [Suspect]
     Indication: HYPERTENSION

REACTIONS (10)
  - Pruritus [Unknown]
  - Headache [Unknown]
  - Abdominal pain upper [Unknown]
  - Coeliac disease [Unknown]
  - Diarrhoea [Unknown]
  - Flatulence [Unknown]
  - Abdominal distension [Unknown]
  - Irritability [Unknown]
  - Dermatitis herpetiformis [Unknown]
  - Blister [Unknown]
